FAERS Safety Report 8454022-4 (Version None)
Quarter: 2012Q2

REPORT INFORMATION
  Report Type: 
  Country: None (occurrence: None)
  Receive Date: 20120620
  Receipt Date: 20120531
  Transmission Date: 20120825
  Serious: No
  Sender: FDA-Public Use
  Company Number: US-ASTRAZENECA-2012SE36764

PATIENT
  Sex: Female

DRUGS (2)
  1. PULMICORT [Suspect]
     Route: 055
  2. BROVANA [Concomitant]

REACTIONS (3)
  - DRUG INEFFECTIVE [None]
  - BRONCHITIS [None]
  - OFF LABEL USE [None]
